FAERS Safety Report 10237247 (Version 1)
Quarter: 2014Q1

REPORT INFORMATION
  Report Type: Spontaneous
  Country: US (occurrence: None)
  Receive Date: 20140306
  Receipt Date: 20140306
  Transmission Date: 20141002
  Serious: Yes (Other)
  Sender: FDA-Public Use
  Company Number: 163-21880-13124746

PATIENT
  Age: 61 Year
  Sex: Male
  Weight: 104.33 kg

DRUGS (6)
  1. REVLIMID [Suspect]
     Indication: MYELODYSPLASTIC SYNDROME
     Dosage: 10 MG, 21 IN 21 D PO
     Route: 048
     Dates: start: 20131205
  2. VIDAZA (AZACITIDINE) (UNKNOWN) [Concomitant]
  3. LIPITOR (ATORVASTATIN) [Concomitant]
  4. METFORMIN (METFORMIN) [Concomitant]
  5. ZOFRAN (ONDANSETRON HYDROCHLORIDE) [Concomitant]
  6. LEVOFLOXACIN [Concomitant]

REACTIONS (3)
  - Neutropenia [None]
  - Full blood count decreased [None]
  - Platelet count decreased [None]
